FAERS Safety Report 10587987 (Version 1)
Quarter: 2014Q4

REPORT INFORMATION
  Report Type: Spontaneous
  Country: US (occurrence: US)
  Receive Date: 20141117
  Receipt Date: 20141117
  Transmission Date: 20150529
  Serious: Yes (Other)
  Sender: FDA-Public Use
  Company Number: US-SA-2014SA156277

PATIENT
  Age: 69 Year
  Sex: Male

DRUGS (4)
  1. VICODIN [Suspect]
     Active Substance: ACETAMINOPHEN\HYDROCODONE BITARTRATE
     Route: 065
     Dates: start: 2001, end: 2001
  2. AMBIEN CR [Suspect]
     Active Substance: ZOLPIDEM TARTRATE
     Route: 065
     Dates: start: 2001, end: 2001
  3. ERYTHROMYCIN. [Suspect]
     Active Substance: ERYTHROMYCIN
     Route: 065
     Dates: start: 2001, end: 2001
  4. ATIVAN [Suspect]
     Active Substance: LORAZEPAM
     Route: 065
     Dates: start: 2001, end: 2001

REACTIONS (6)
  - Hallucination [Unknown]
  - Internal haemorrhage [Unknown]
  - Tongue discolouration [Unknown]
  - Rectal haemorrhage [Unknown]
  - Mood swings [Unknown]
  - Cardiac disorder [Unknown]
